FAERS Safety Report 24685244 (Version 1)
Quarter: 2024Q4

REPORT INFORMATION
  Report Type: Spontaneous
  Country: RO (occurrence: RO)
  Receive Date: 20241202
  Receipt Date: 20241202
  Transmission Date: 20250115
  Serious: Yes (Other)
  Sender: MERCK
  Company Number: RO-009507513-2411ROU011848

PATIENT
  Age: 56 Year
  Sex: Female

DRUGS (3)
  1. PEMBROLIZUMAB [Suspect]
     Active Substance: PEMBROLIZUMAB
     Indication: Breast cancer stage IV
     Dosage: 200 MILLIGRAM
  2. GEMCITABINE [Suspect]
     Active Substance: GEMCITABINE
     Indication: Breast cancer stage IV
     Dosage: 1000 MILLIGRAM/SQ. METER
  3. CARBOPLATIN [Suspect]
     Active Substance: CARBOPLATIN
     Indication: Breast cancer stage IV
     Dosage: AREA UNDER THE CURVE (AUC) 2

REACTIONS (2)
  - Myelosuppression [Unknown]
  - Bone lesion [Unknown]

NARRATIVE: CASE EVENT DATE: 20241001
